FAERS Safety Report 8160623-3 (Version None)
Quarter: 2012Q1

REPORT INFORMATION
  Report Type: 
  Country: None (occurrence: None)
  Receive Date: 20120223
  Receipt Date: 20120210
  Transmission Date: 20120608
  Serious: Yes (Hospitalization)
  Sender: FDA-Public Use
  Company Number: BY-ROCHE-1039206

PATIENT
  Sex: Female
  Weight: 78 kg

DRUGS (3)
  1. RITUXAN [Suspect]
     Indication: CHRONIC LYMPHOCYTIC LEUKAEMIA
     Dosage: LAST DOSE PRIOR TO SAE: 07 DEC 2011
     Route: 042
     Dates: start: 20110425
  2. CLADRIBINE [Suspect]
     Indication: CHRONIC LYMPHOCYTIC LEUKAEMIA
     Dosage: LAST DOSE PRIOR TO SAE: 15 SEP 2011
     Route: 042
     Dates: start: 20110426
  3. CYCLOPHOSPHAMIDE [Suspect]
     Indication: CHRONIC LYMPHOCYTIC LEUKAEMIA
     Dosage: LAST DOSE PRIOR TO SAE: 15 SEP 2011
     Route: 042
     Dates: start: 20110426

REACTIONS (1)
  - SYMPATHETIC POSTERIOR CERVICAL SYNDROME [None]
